FAERS Safety Report 8895739 (Version 2)
Quarter: 2015Q2

REPORT INFORMATION
  Report Type: Report from Study
  Country: US (occurrence: US)
  Receive Date: 20121108
  Receipt Date: 20150415
  Transmission Date: 20150821
  Serious: Yes (Death)
  Sender: FDA-Public Use
  Company Number: US-ROCHE-1134847

PATIENT
  Sex: Female

DRUGS (4)
  1. RITUXAN [Suspect]
     Active Substance: RITUXIMAB
     Indication: OFF LABEL USE
  2. RITUXAN [Suspect]
     Active Substance: RITUXIMAB
     Indication: SYSTEMIC LUPUS ERYTHEMATOSUS
  3. RITUXAN [Suspect]
     Active Substance: RITUXIMAB
     Indication: LUPUS ENDOCARDITIS
  4. RITUXAN [Suspect]
     Active Substance: RITUXIMAB
     Indication: SYSTEMIC LUPUS ERYTHEMATOSUS
     Dosage: ON DAY 1 AND DAY 15
     Route: 042

REACTIONS (1)
  - Death [Fatal]
